FAERS Safety Report 14689139 (Version 2)
Quarter: 2019Q2

REPORT INFORMATION
  Report Type: Spontaneous
  Country: US (occurrence: US)
  Receive Date: 20180328
  Receipt Date: 20190403
  Transmission Date: 20190711
  Serious: Yes (Other)
  Sender: FDA-Public Use
  Company Number: US-GLAXOSMITHKLINE-US2018GSK052359

PATIENT
  Sex: Female

DRUGS (3)
  1. PREVACID [Suspect]
     Active Substance: LANSOPRAZOLE
     Indication: PRODUCT USED FOR UNKNOWN INDICATION
     Dosage: 30 MG, QD
     Route: 048
  2. OMEPRAZOLE. [Suspect]
     Active Substance: OMEPRAZOLE
     Indication: ULCER
     Dosage: UNK
     Route: 065
  3. PREVACID [Suspect]
     Active Substance: LANSOPRAZOLE
     Indication: PRODUCT USED FOR UNKNOWN INDICATION
     Dosage: UNK
     Route: 065

REACTIONS (19)
  - Renal atrophy [Unknown]
  - Intercapillary glomerulosclerosis [Unknown]
  - Acute kidney injury [Unknown]
  - Blood creatinine increased [Unknown]
  - Pollakiuria [Unknown]
  - Renal failure [Unknown]
  - Renal injury [Unknown]
  - Renal pain [Unknown]
  - Polyuria [Unknown]
  - Chronic kidney disease [Unknown]
  - Diabetic nephropathy [Unknown]
  - IgA nephropathy [Unknown]
  - Biopsy kidney [Unknown]
  - Dysuria [Unknown]
  - Renal impairment [Unknown]
  - Kidney fibrosis [Unknown]
  - Tubulointerstitial nephritis [Unknown]
  - Micturition urgency [Unknown]
  - Nephropathy [Unknown]
